FAERS Safety Report 25897947 (Version 6)
Quarter: 2025Q4

REPORT INFORMATION
  Report Type: Spontaneous
  Country: JP (occurrence: JP)
  Receive Date: 20251008
  Receipt Date: 20251230
  Transmission Date: 20260117
  Serious: Yes (Other)
  Sender: ABBVIE
  Company Number: JP-ABBVIE-6492092

PATIENT
  Age: 53 Year
  Sex: Female

DRUGS (9)
  1. RINVOQ [Suspect]
     Active Substance: UPADACITINIB
     Indication: Rheumatoid arthritis
     Dosage: 15 MILLIGRAM
     Route: 048
     Dates: start: 20250930, end: 20251008
  2. Lactomin maruishi [Concomitant]
     Indication: Irritable bowel syndrome
     Dosage: TIME INTERVAL: 0.16666667 DAYS
     Route: 048
     Dates: start: 20230608
  3. NEUROTROPIN [Concomitant]
     Active Substance: NEUROTROPIN
     Indication: Rheumatoid arthritis
     Dosage: 16 UNIT
     Route: 048
  4. FOLIC ACID [Concomitant]
     Active Substance: FOLIC ACID
     Indication: Rheumatoid arthritis
     Dosage: 5 MILLIGRAM
     Route: 048
  5. VERAPAMIL HYDROCHLORIDE [Concomitant]
     Active Substance: VERAPAMIL HYDROCHLORIDE
     Indication: Arrhythmia
     Dosage: TIME INTERVAL: 0.33333333 DAYS: 120 MILLIGRAM
     Route: 048
  6. PILOCARPINE HYDROCHLORIDE [Concomitant]
     Active Substance: PILOCARPINE HYDROCHLORIDE
     Indication: Sjogren^s syndrome
     Dosage: 10 MILLIGRAM
     Route: 048
  7. SULFASALAZINE [Concomitant]
     Active Substance: SULFASALAZINE
     Indication: Rheumatoid arthritis
     Dosage: FORM STRENGTH: 1000 MILLIGRAM
     Route: 048
  8. METHOTREXATE [Concomitant]
     Active Substance: METHOTREXATE
     Indication: Rheumatoid arthritis
     Dosage: TIME INTERVAL: 0.33333333 DAYS: 6 MILLIGRAM
     Route: 048
  9. CLOSTRIDIUM BUTYRICUM [Concomitant]
     Indication: Irritable bowel syndrome

REACTIONS (4)
  - Internal haemorrhage [Unknown]
  - Headache [Not Recovered/Not Resolved]
  - Chest pain [Not Recovered/Not Resolved]
  - Hyperhidrosis [Not Recovered/Not Resolved]

NARRATIVE: CASE EVENT DATE: 20251001
